FAERS Safety Report 10054766 (Version 2)
Quarter: 2014Q2

REPORT INFORMATION
  Report Type: Spontaneous
  Country: US (occurrence: US)
  Receive Date: 20140402
  Receipt Date: 20140402
  Transmission Date: 20141212
  Serious: Yes (Other)
  Sender: FDA-Public Use
  Company Number: US-MPIJNJ-2014MPI000281

PATIENT
  Age: 16 Year
  Sex: Female
  Weight: 156 kg

DRUGS (12)
  1. VELCADE [Suspect]
     Indication: ACUTE LYMPHOCYTIC LEUKAEMIA
     Dosage: 3.5 MG, UNK
     Route: 042
     Dates: start: 20140116
  2. LANTUS [Concomitant]
     Dosage: 0.5 ML, UNK
  3. ALLOPURINOL [Concomitant]
     Dosage: 100 MG, UNK
  4. HYDROCORTISONE [Concomitant]
     Dosage: 20 MG, UNK
  5. PREDNISONE [Concomitant]
     Dosage: 50 MG, UNK
  6. BACTRIM DS [Concomitant]
     Dosage: UNK
  7. CALCIUM CARBONATE [Concomitant]
     Dosage: 1250 MG, UNK
  8. CETIRIZINE [Concomitant]
     Dosage: 10 MG, UNK
  9. DIPHENHYDRAMINE [Concomitant]
     Dosage: 25 MG, UNK
  10. DRONABINOL [Concomitant]
     Dosage: 5 MG, UNK
  11. KEPPRA [Concomitant]
     Dosage: 500 MG, UNK
  12. NORCO [Concomitant]
     Dosage: 500/325 MG

REACTIONS (2)
  - Vocal cord paralysis [Recovered/Resolved]
  - Off label use [Not Recovered/Not Resolved]
